FAERS Safety Report 6498957-0 (Version None)
Quarter: 2009Q4

REPORT INFORMATION
  Report Type: 
  Country: None (occurrence: None)
  Receive Date: 20091215
  Receipt Date: 20091201
  Transmission Date: 20100525
  Serious: Yes (Death)
  Sender: FDA-Public Use
  Company Number: US-MYLANLABS-2009S1020592

PATIENT
  Age: 23 Year
  Sex: Female

DRUGS (5)
  1. MERCAPTOPURINE [Suspect]
     Indication: CROHN'S DISEASE
     Dates: end: 20010101
  2. INFLIXIMAB [Suspect]
     Indication: CROHN'S DISEASE
     Dates: start: 20010101
  3. INFLIXIMAB [Suspect]
     Dosage: 10 MG/KG EVERY 4 WEEKS
  4. ADALIMUMAB [Suspect]
     Indication: CROHN'S DISEASE
     Dosage: 80MG WEEKLY
  5. TACROLIMUS [Suspect]
     Indication: CROHN'S DISEASE

REACTIONS (1)
  - ADENOCARCINOMA [None]
